FAERS Safety Report 6502734-1 (Version None)
Quarter: 2009Q4

REPORT INFORMATION
  Report Type: 
  Country: None (occurrence: None)
  Receive Date: 20091217
  Receipt Date: 20091207
  Transmission Date: 20100525
  Serious: Yes (Hospitalization, Other)
  Sender: FDA-Public Use
  Company Number: FR-BRISTOL-MYERS SQUIBB COMPANY-14798375

PATIENT
  Age: 62 Year
  Sex: Female
  Weight: 53 kg

DRUGS (3)
  1. CETUXIMAB [Suspect]
     Indication: NON-SMALL CELL LUNG CANCER
     Dosage: MOST RECENT INFUSION ON : 16-SEP-2009;5MG/ML. DISCONTINUED 23SEP09
     Route: 042
     Dates: start: 20090825, end: 20090916
  2. CISPLATIN [Suspect]
     Indication: NON-SMALL CELL LUNG CANCER
     Dosage: MOST RECENT INFUSION ON : 16-SEP-2009;DAY1 OF 21 DAY CYCLE. DISCONTINUED 23SEP09
     Route: 042
     Dates: start: 20090825, end: 20090916
  3. VINORELBINE [Suspect]
     Indication: NON-SMALL CELL LUNG CANCER
     Dosage: DAY 1, 8 OF 21-DAY CYCLE AND RESTART ON 16SEP09;MOST RECENT INFUSION:16SEP09.DISCONTINUED 23SEP09
     Route: 042
     Dates: start: 20090825, end: 20090916

REACTIONS (1)
  - DECREASED APPETITE [None]
